FAERS Safety Report 6653712-3 (Version None)
Quarter: 2010Q1

REPORT INFORMATION
  Report Type: 
  Country: None (occurrence: None)
  Receive Date: 20100326
  Receipt Date: 20100317
  Transmission Date: 20100710
  Serious: Yes (Other)
  Sender: FDA-Public Use
  Company Number: US-BRISTOL-MYERS SQUIBB COMPANY-15022858

PATIENT
  Age: 52 Year
  Sex: Male
  Weight: 83 kg

DRUGS (2)
  1. SPRYCEL [Suspect]
     Indication: CHRONIC MYELOID LEUKAEMIA
     Route: 048
     Dates: start: 20090901
  2. ATIVAN [Concomitant]
     Dosage: TAKEN AT BED TIME
     Route: 048

REACTIONS (2)
  - TOOTH FRACTURE [None]
  - TOOTH LOSS [None]
